FAERS Safety Report 5082806-1 (Version None)
Quarter: 2006Q3

REPORT INFORMATION
  Report Type: 
  Country: None (occurrence: None)
  Receive Date: 20060720
  Receipt Date: 20060202
  Transmission Date: 20061208
  Serious: Yes (Other)
  Sender: FDA-Public Use
  Company Number: 2006018555

PATIENT
  Age: 62 Year
  Sex: Female
  Weight: 54.4316 kg

DRUGS (5)
  1. CELEBREX [Suspect]
     Indication: OSTEOARTHRITIS
     Dosage: 200 MG (200 MG,1 IN 1 D)
     Dates: start: 20030101
  2. FOSAMAX [Suspect]
     Indication: OSTEOPOROSIS
  3. MOBIC [Suspect]
     Indication: OSTEOARTHRITIS
  4. ACTONEL [Suspect]
     Indication: OSTEOPOROSIS
  5. ALL OTHER THERAPEUTIC PRODUCTS (ALL OTHER THERAPEUTIC PRODUCTS) [Suspect]
     Indication: URINARY TRACT INFECTION
     Dates: start: 20050401

REACTIONS (6)
  - GASTROINTESTINAL HAEMORRHAGE [None]
  - OSTEOPOROSIS [None]
  - PRURITUS [None]
  - SWELLING [None]
  - URINARY TRACT INFECTION [None]
  - URTICARIA [None]
